FAERS Safety Report 9843506 (Version 1)
Quarter: 2013Q4

REPORT INFORMATION
  Report Type: Spontaneous
  Country: US (occurrence: None)
  Receive Date: 20131219
  Receipt Date: 20131219
  Transmission Date: 20140711
  Serious: Yes (Other)
  Sender: FDA-Public Use
  Company Number: 163-20785-12051377

PATIENT
  Age: 62 Year
  Sex: Male

DRUGS (1)
  1. THALOMID (THALIDOMIDE) (200 MILLIGRAM, CAPSULES) [Suspect]
     Indication: PLASMA CELL MYELOMA
     Route: 048
     Dates: start: 20090129, end: 20110304

REACTIONS (4)
  - Influenza like illness [None]
  - Haemorrhoids [None]
  - Constipation [None]
  - Rash [None]
